FAERS Safety Report 20461179 (Version 3)
Quarter: 2022Q2

REPORT INFORMATION
  Report Type: Spontaneous
  Country: US (occurrence: US)
  Receive Date: 20220211
  Receipt Date: 20220502
  Transmission Date: 20220721
  Serious: No
  Sender: FDA-Public Use
  Company Number: US-PHARMING-PHAUS2022000098

PATIENT

DRUGS (9)
  1. RUCONEST [Suspect]
     Active Substance: HUMAN C1-ESTERASE INHIBITOR
     Indication: Hereditary angioedema
     Dosage: 4200 IU, AS NEEDED
     Route: 042
  2. RUCONEST [Suspect]
     Active Substance: HUMAN C1-ESTERASE INHIBITOR
     Indication: Hereditary angioedema
     Dosage: 4200 IU, PRN
     Route: 042
     Dates: start: 20220422
  3. RUCONEST [Suspect]
     Active Substance: HUMAN C1-ESTERASE INHIBITOR
     Dosage: 4200 IU, PRN
     Route: 042
     Dates: start: 20220422
  4. PRENATAL VITAMINS                  /02014401/ [Concomitant]
     Indication: Vitamin supplementation
     Dosage: UNK, QD
     Route: 048
  5. VITAMIN D                          /00107901/ [Concomitant]
     Indication: Vitamin supplementation
     Dosage: UNK, QD
     Route: 048
  6. ALBUTEROL [Concomitant]
     Active Substance: ALBUTEROL
     Indication: Asthma
     Dosage: UNK, AS NEEDED
     Route: 055
  7. BUSPIRONE [Concomitant]
     Active Substance: BUSPIRONE HYDROCHLORIDE
     Indication: Anxiety
     Dosage: UNK, AS NEEDED
     Route: 048
  8. ZOFRAN                             /00955301/ [Concomitant]
     Indication: Nausea
     Dosage: UNK, AS NEEDED
     Route: 048
  9. HAEGARDA [Concomitant]
     Active Substance: HUMAN C1-ESTERASE INHIBITOR
     Indication: Hereditary angioedema
     Dosage: 5000 IU, EVERY FOUR DAYS
     Route: 058

REACTIONS (5)
  - Eating disorder [Recovering/Resolving]
  - Insomnia [Recovering/Resolving]
  - Maternal exposure during pregnancy [Unknown]
  - COVID-19 [Recovered/Resolved]
  - Weight increased [Unknown]
